FAERS Safety Report 9780641 (Version 3)
Quarter: 2014Q1

REPORT INFORMATION
  Report Type: Spontaneous
  Country: DE (occurrence: DE)
  Receive Date: 20131224
  Receipt Date: 20140109
  Transmission Date: 20141002
  Serious: Yes (Hospitalization, Other)
  Sender: FDA-Public Use
  Company Number: DE-JNJFOC-20131111207

PATIENT
  Sex: Female
  Weight: 72 kg

DRUGS (5)
  1. RISPERDAL [Suspect]
     Indication: PSYCHOTIC DISORDER
     Route: 048
  2. RISPERDAL [Suspect]
     Indication: PSYCHOTIC DISORDER
     Route: 048
  3. RISPERDAL [Suspect]
     Indication: PSYCHOTIC DISORDER
     Route: 048
     Dates: start: 2008, end: 20120921
  4. HALDOL [Suspect]
     Indication: PSYCHOTIC DISORDER
     Route: 048
     Dates: start: 20120922
  5. PRAVIDEL [Concomitant]
     Indication: WITHDRAWAL SYNDROME
     Route: 048
     Dates: start: 20130508

REACTIONS (7)
  - Pituitary tumour benign [Unknown]
  - Premature labour [Recovered/Resolved]
  - Hypothalamo-pituitary disorder [Recovering/Resolving]
  - Exposure during pregnancy [Recovered/Resolved]
  - Prescribed overdose [Recovered/Resolved]
  - Blood prolactin increased [Unknown]
  - Galactorrhoea [Recovering/Resolving]
